FAERS Safety Report 7430470-6 (Version None)
Quarter: 2011Q2

REPORT INFORMATION
  Report Type: 
  Country: None (occurrence: None)
  Receive Date: 20110419
  Receipt Date: 20110419
  Transmission Date: 20111010
  Serious: Yes (Hospitalization)
  Sender: FDA-Public Use
  Company Number: None

PATIENT
  Age: 86 Year
  Sex: Male

DRUGS (2)
  1. IBUPROFEN TABLETS [Suspect]
     Indication: PAIN IN EXTREMITY
     Dosage: 800MG TID PO
     Route: 048
     Dates: start: 20110216, end: 20110323
  2. NAPROXEN [Suspect]
     Indication: PAIN IN EXTREMITY
     Dosage: 500MG BID PO
     Route: 048
     Dates: start: 20110126, end: 20110323

REACTIONS (1)
  - GASTRITIS [None]
